FAERS Safety Report 21909276 (Version 1)
Quarter: 2023Q1

REPORT INFORMATION
  Report Type: Spontaneous
  Country: US (occurrence: US)
  Receive Date: 20230125
  Receipt Date: 20230125
  Transmission Date: 20230418
  Serious: Yes (Life-Threatening, Other)
  Sender: FDA-Public Use
  Company Number: US-FreseniusKabi-FK202300840

PATIENT
  Sex: Female

DRUGS (5)
  1. PACLITAXEL [Suspect]
     Active Substance: PACLITAXEL
     Indication: Female reproductive neoplasm
     Dosage: ONCE, AS A FIRST DOSE OF THEIR TREATMENT CYCLE?DOSE AND DURATION ASKED BUT UNKNOWN
     Route: 042
     Dates: start: 202301, end: 202301
  2. BENADRYL [Concomitant]
     Active Substance: DIPHENHYDRAMINE HYDROCHLORIDE
     Indication: Premedication
     Route: 065
  3. ZOFRAN [Concomitant]
     Active Substance: ONDANSETRON HYDROCHLORIDE
     Indication: Premedication
     Route: 065
  4. DECADRON [Concomitant]
     Active Substance: DEXAMETHASONE
     Indication: Premedication
     Route: 065
  5. PEPCID [Concomitant]
     Active Substance: FAMOTIDINE
     Indication: Premedication
     Route: 065

REACTIONS (1)
  - Anaphylactic reaction [Recovered/Resolved]

NARRATIVE: CASE EVENT DATE: 20230101
